FAERS Safety Report 5237149-X (Version None)
Quarter: 2007Q1

REPORT INFORMATION
  Report Type: 
  Country: None (occurrence: None)
  Receive Date: 20070213
  Receipt Date: 20070206
  Transmission Date: 20070707
  Serious: Yes (Hospitalization)
  Sender: FDA-Public Use
  Company Number: FR-GLAXOSMITHKLINE-B0455906A

PATIENT
  Age: 83 Year
  Sex: Female
  Weight: 64 kg

DRUGS (7)
  1. ARIXTRA [Suspect]
     Indication: PHLEBITIS
     Dosage: 7.5MG PER DAY
     Route: 058
     Dates: start: 20061230
  2. GINKOR FORT [Concomitant]
     Dosage: 2UNIT PER DAY
     Route: 048
  3. ATACAND [Concomitant]
     Dosage: 8MG PER DAY
     Route: 048
  4. SYMBICORT [Concomitant]
     Dosage: 400MCG TWICE PER DAY
     Route: 048
  5. CATAPRES [Concomitant]
     Dosage: .3MG PER DAY
     Route: 048
  6. TETRAZEPAM [Concomitant]
     Dosage: 50MG PER DAY
     Route: 048
  7. SIMVASTATIN [Concomitant]
     Dosage: 20MG PER DAY

REACTIONS (3)
  - BLISTER [None]
  - HAEMATOMA [None]
  - PULMONARY EMBOLISM [None]
